FAERS Safety Report 8548071-5 (Version None)
Quarter: 2012Q3

REPORT INFORMATION
  Report Type: 
  Country: None (occurrence: None)
  Receive Date: 20120730
  Receipt Date: 20120724
  Transmission Date: 20120928
  Serious: Yes (Hospitalization)
  Sender: FDA-Public Use
  Company Number: US-AMGEN-USASP2012046213

PATIENT
  Age: 67 Year
  Sex: Female

DRUGS (7)
  1. PREDNISONE [Concomitant]
  2. TACROLIMUS [Concomitant]
  3. VALGANCICLOVIR [Concomitant]
  4. MYCOPHENOLATE MOFETIL [Concomitant]
  5. ARANESP [Suspect]
     Indication: RENAL FAILURE CHRONIC
     Dosage: 60 MUG, QWK
     Dates: start: 20120525
  6. ARANESP [Suspect]
     Indication: RENAL TRANSPLANT
  7. SULFAMETHOXAZOLE AND TRIMETHOPRIM [Concomitant]

REACTIONS (2)
  - COMPLICATIONS OF TRANSPLANTED KIDNEY [None]
  - RENAL FAILURE [None]
